FAERS Safety Report 6176843-3 (Version None)
Quarter: 2009Q2

REPORT INFORMATION
  Report Type: 
  Country: None (occurrence: None)
  Receive Date: 20090501
  Receipt Date: 20090428
  Transmission Date: 20091009
  Serious: Yes (Life-Threatening, Hospitalization)
  Sender: FDA-Public Use
  Company Number: PHHO2009DE05452

PATIENT
  Sex: Male
  Weight: 75 kg

DRUGS (10)
  1. RAD 666 RAD+TAB [Suspect]
     Indication: METASTATIC RENAL CELL CARCINOMA
     Dosage: 10 MG/DAY
     Route: 048
     Dates: start: 20090217, end: 20090422
  2. PREDNISONE [Concomitant]
     Indication: SWELLING
     Dosage: 25 MG, UNK
     Dates: start: 20090422
  3. AMLODIPINE [Concomitant]
     Dosage: 5 MG, QD
  4. ATACAND [Concomitant]
     Dosage: 16 MG, BID
  5. LEVOTHYROXINE SODIUM [Concomitant]
     Dosage: 100 UG, QD
  6. TAMSULOSIN HCL [Concomitant]
     Dosage: 0.4 MG, QD
  7. OMEP [Concomitant]
     Dosage: 20 MG, QD
  8. HYDROMORPHONE HYDROCHLORIDE [Concomitant]
     Dosage: 32 MG, QD
  9. PALLADONE [Concomitant]
     Dosage: 2.6 MG, QID
  10. ANTIBIOTICS [Concomitant]

REACTIONS (4)
  - DYSPNOEA [None]
  - HYPERTENSION [None]
  - HYPERTENSIVE CRISIS [None]
  - PNEUMONIA [None]
